FAERS Safety Report 11009007 (Version 1)
Quarter: 2015Q2

REPORT INFORMATION
  Report Type: Spontaneous
  Country: US (occurrence: US)
  Receive Date: 20150410
  Receipt Date: 20150410
  Transmission Date: 20150821
  Serious: Yes (Death, Other)
  Sender: FDA-Public Use
  Company Number: US-GLAXOSMITHKLINE-A1081492A

PATIENT
  Sex: Female

DRUGS (2)
  1. BELIMUMAB [Suspect]
     Active Substance: BELIMUMAB
     Indication: SYSTEMIC LUPUS ERYTHEMATOSUS
     Route: 042
     Dates: start: 20110805
  2. BELIMUMAB [Suspect]
     Active Substance: BELIMUMAB
     Dosage: 700 MG, UNK

REACTIONS (5)
  - Pain [Unknown]
  - Walking aid user [Unknown]
  - Activities of daily living impaired [Unknown]
  - Death [Fatal]
  - Malaise [Unknown]
